FAERS Safety Report 19205631 (Version 1)
Quarter: 2021Q2

REPORT INFORMATION
  Report Type: Spontaneous
  Country: US (occurrence: US)
  Receive Date: 20210503
  Receipt Date: 20210503
  Transmission Date: 20210717
  Serious: No
  Sender: FDA-Public Use
  Company Number: US-FARMAPROD-202101-0107

PATIENT
  Sex: Female
  Weight: 78.27 kg

DRUGS (5)
  1. VALACYCLOVIR [Concomitant]
     Active Substance: VALACYCLOVIR HYDROCHLORIDE
  2. TYLENOL EXTRA STRENGTH [Concomitant]
     Active Substance: ACETAMINOPHEN
  3. NAPROXEN. [Concomitant]
     Active Substance: NAPROXEN
     Dosage: DELAYED RELEASE TABLET
  4. OXERVATE [Suspect]
     Active Substance: CENEGERMIN-BKBJ
     Indication: NEUROTROPHIC KERATOPATHY
     Route: 047
     Dates: start: 20201208
  5. FISH OIL [Concomitant]
     Active Substance: FISH OIL

REACTIONS (2)
  - Ocular discomfort [Unknown]
  - Eye pain [Unknown]
